FAERS Safety Report 7220764-1 (Version None)
Quarter: 2011Q1

REPORT INFORMATION
  Report Type: 
  Country: None (occurrence: None)
  Receive Date: 20110111
  Receipt Date: 20110104
  Transmission Date: 20110831
  Serious: Yes (Other)
  Sender: FDA-Public Use
  Company Number: US-PFIZER INC-2011001979

PATIENT
  Sex: Female
  Weight: 99.77 kg

DRUGS (2)
  1. DILANTIN [Suspect]
     Indication: ARTERIOVENOUS MALFORMATION
     Dosage: 300 MG AND 60 MG CAPSULE 1X/DAY
     Route: 048
     Dates: start: 19800101
  2. LEVOTHYROXINE [Concomitant]
     Indication: HYPOTHYROIDISM
     Dosage: 200 UG, 1X/DAY

REACTIONS (1)
  - ASTHMA [None]
